FAERS Safety Report 7825701-4 (Version None)
Quarter: 2011Q4

REPORT INFORMATION
  Report Type: 
  Country: None (occurrence: None)
  Receive Date: 20111019
  Receipt Date: 20111010
  Transmission Date: 20120403
  Serious: Yes (Hospitalization, Other)
  Sender: FDA-Public Use
  Company Number: US-ASTRAZENECA-2011SE37678

PATIENT
  Age: 73 Year
  Sex: Female

DRUGS (19)
  1. LIMBITROL [Concomitant]
     Route: 048
  2. LEVAQUIN [Concomitant]
     Route: 048
  3. FISH OIL [Concomitant]
     Route: 048
  4. MELATONIN [Concomitant]
  5. LEXAPRO [Concomitant]
     Route: 048
  6. VITAMIN B COMPLEX CAP [Concomitant]
     Dosage: ONE PILL ONCE A DAY
  7. SEROQUEL XR [Concomitant]
     Route: 048
  8. ZANAFLEX [Concomitant]
  9. COZAAR [Concomitant]
     Route: 048
  10. PRILOSEC [Concomitant]
     Route: 048
  11. CRESTOR [Suspect]
     Route: 048
  12. AMBIEN [Concomitant]
  13. VITAMIN D [Concomitant]
     Route: 048
  14. COUMADIN [Concomitant]
  15. ADVAIR DISKUS 100/50 [Concomitant]
     Dosage: 250/50 ONE PUFF BID
  16. CO-Q 10 ENZYME [Concomitant]
     Route: 048
  17. ASCORBIC ACID [Concomitant]
     Route: 048
  18. ASPIRIN [Concomitant]
     Route: 048
  19. MAGNESIUM [Concomitant]
     Route: 048

REACTIONS (11)
  - PNEUMONIA [None]
  - SEPTIC SHOCK [None]
  - HAEMOPTYSIS [None]
  - DYSLIPIDAEMIA [None]
  - HYPERTENSIVE HEART DISEASE [None]
  - MEDICAL DEVICE PAIN [None]
  - SKIN CANCER [None]
  - BENIGN BREAST NEOPLASM [None]
  - NARCOLEPSY [None]
  - BRONCHOPNEUMONIA [None]
  - ATRIAL FIBRILLATION [None]
